FAERS Safety Report 12145239 (Version 1)
Quarter: 2016Q1

REPORT INFORMATION
  Report Type: Spontaneous
  Country: US (occurrence: US)
  Receive Date: 20160304
  Receipt Date: 20160304
  Transmission Date: 20160526
  Serious: Yes (Other)
  Sender: FDA-Public Use
  Company Number: US-TEVA-602857USA

PATIENT
  Age: 62 Year
  Sex: Female
  Weight: 90.8 kg

DRUGS (1)
  1. TAMOXIFEN [Suspect]
     Active Substance: TAMOXIFEN
     Indication: BREAST CANCER
     Dates: start: 201312

REACTIONS (3)
  - Thrombosis [Unknown]
  - Cataract [Unknown]
  - Uterine disorder [Unknown]

NARRATIVE: CASE EVENT DATE: 201503
